FAERS Safety Report 8976818 (Version 1)
Quarter: 2012Q4

REPORT INFORMATION
  Report Type: Report from Study
  Country: GB (occurrence: GB)
  Receive Date: 20121219
  Receipt Date: 20121219
  Transmission Date: 20130627
  Serious: Yes (Hospitalization)
  Sender: FDA-Public Use
  Company Number: GB-PFIZER INC-2012315041

PATIENT
  Age: 57 Year
  Sex: Female
  Weight: 55.4 kg

DRUGS (6)
  1. EPIRUBICIN HCL [Suspect]
     Indication: BREAST CANCER
     Dosage: 160 mg, cycle 4
     Dates: start: 20100922
  2. CYCLOPHOSPHAMIDE [Suspect]
     Indication: BREAST CANCER
     Dosage: 800 mg, UNK
     Dates: start: 20100922
  3. CISPLATIN [Suspect]
     Indication: BREAST CANCER
     Dosage: 800 mg, cycle 4
     Dates: start: 20100922
  4. MITOMYCIN [Suspect]
     Indication: BREAST CANCER
     Dosage: 800 mg, UNK
     Dates: start: 20100922
  5. BEVACIZUMAB [Suspect]
     Indication: BREAST CANCER
     Dosage: 825 mg, UNK
     Dates: start: 20100922
  6. 5-FLUOROURACIL [Suspect]
     Indication: BREAST CANCER
     Dosage: 800 mg, cycle 4
     Dates: start: 20100922

REACTIONS (1)
  - Urinary tract infection [Recovered/Resolved]
